FAERS Safety Report 16401543 (Version 1)
Quarter: 2019Q2

REPORT INFORMATION
  Report Type: Spontaneous
  Country: US (occurrence: US)
  Receive Date: 20190606
  Receipt Date: 20190606
  Transmission Date: 20190711
  Serious: Yes (Other)
  Sender: FDA-Public Use
  Company Number: US-TEVA-2019-US-1059222

PATIENT
  Age: 6 Year
  Sex: Female

DRUGS (2)
  1. VORICONAZOLE. [Suspect]
     Active Substance: VORICONAZOLE
     Indication: FUNGAL INFECTION
     Route: 065
  2. AMPHOTERICIN [Concomitant]
     Active Substance: AMPHOTERICIN B
     Indication: FUNGAL INFECTION
     Dosage: 7 MONTHS WITH VORICONAZOLE AND AFTER THAT 4 MONTHS AS MONOTHERAPY
     Route: 065

REACTIONS (2)
  - Toxicity to various agents [Unknown]
  - Hepatic encephalopathy [Unknown]
